FAERS Safety Report 6729377-9 (Version None)
Quarter: 2010Q2

REPORT INFORMATION
  Report Type: 
  Country: None (occurrence: None)
  Receive Date: 20100517
  Receipt Date: 20100510
  Transmission Date: 20101027
  Serious: Yes (Disabling, Other)
  Sender: FDA-Public Use
  Company Number: DE-ABBOTT-10P-062-0640183-00

PATIENT
  Age: 36 Year
  Sex: Female

DRUGS (2)
  1. ERGENYL [Suspect]
     Indication: GRAND MAL CONVULSION
     Dosage: 300MG DAILY
     Route: 048
     Dates: start: 20080101, end: 20100101
  2. TOPAMAX [Concomitant]
     Indication: DRUG USE FOR UNKNOWN INDICATION

REACTIONS (1)
  - CELL-MEDIATED IMMUNE DEFICIENCY [None]
